FAERS Safety Report 6542912-9 (Version None)
Quarter: 2010Q1

REPORT INFORMATION
  Report Type: 
  Country: None (occurrence: None)
  Receive Date: 20100120
  Receipt Date: 20100108
  Transmission Date: 20100710
  Serious: Yes (Hospitalization)
  Sender: FDA-Public Use
  Company Number: ES-SANOFI-AVENTIS-200814975GDDC

PATIENT
  Age: 77 Year
  Sex: Male

DRUGS (10)
  1. DOCETAXEL [Suspect]
     Dosage: DOSE UNIT: 75 MG/M**2
     Route: 042
     Dates: start: 20080418, end: 20080418
  2. PREDNISONE [Suspect]
     Indication: PROSTATE CANCER
     Dosage: DOSE UNIT: 5 MG
     Route: 048
     Dates: start: 20080418
  3. MONOCLONAL ANTIBODIES [Suspect]
     Dosage: DOSE UNIT: 20 MG/KG
     Route: 042
     Dates: start: 20080418, end: 20080418
  4. PARACETAMOL [Concomitant]
     Dates: start: 20080101
  5. ALLOPURINOL [Concomitant]
     Dates: start: 19980101
  6. DOXAZOSIN MESYLATE [Concomitant]
     Dates: start: 20040101
  7. BEZAFIBRATE [Concomitant]
     Dates: start: 20030101
  8. OMEPRAZOLE [Concomitant]
     Dates: start: 20060101
  9. TRIPTORELIN [Concomitant]
     Dates: start: 20050101
  10. BICALUTAMIDE [Concomitant]
     Dates: start: 20071101

REACTIONS (1)
  - HYPERGLYCAEMIA [None]
